FAERS Safety Report 9608245 (Version 1)
Quarter: 2013Q4

REPORT INFORMATION
  Report Type: Report from Study
  Country: US (occurrence: US)
  Receive Date: 20131009
  Receipt Date: 20131009
  Transmission Date: 20140711
  Serious: Yes (Hospitalization)
  Sender: FDA-Public Use
  Company Number: US-US-EMD SERONO, INC.-7241418

PATIENT
  Age: 68 Year
  Sex: Female

DRUGS (1)
  1. REBIF [Suspect]
     Indication: MULTIPLE SCLEROSIS
     Route: 058
     Dates: start: 20120301

REACTIONS (5)
  - Arthropathy [Unknown]
  - Central nervous system lesion [Unknown]
  - Neutralising antibodies [Not Recovered/Not Resolved]
  - Multiple sclerosis [Recovering/Resolving]
  - Feeling hot [Recovering/Resolving]
